FAERS Safety Report 7885581 (Version 6)
Quarter: 2013Q1

REPORT INFORMATION
  Report Type: Report from Study
  Country: SE (occurrence: SE)
  Receive Date: 20110405
  Receipt Date: 20130128
  Transmission Date: 20140127
  Serious: Yes (Hospitalization, Disabling)
  Sender: FDA-Public Use
  Company Number: PHHO2011SE05336

PATIENT
  Sex: 0

DRUGS (2)
  1. AMN107 [Suspect]
     Indication: GASTROINTESTINAL STROMAL TUMOUR
     Dosage: 800 MG, BID
     Route: 048
     Dates: start: 20100914, end: 20110323
  2. CODEINE [Concomitant]

REACTIONS (1)
  - Cerebral infarction [Recovered/Resolved with Sequelae]
